FAERS Safety Report 4684430-9 (Version None)
Quarter: 2005Q2

REPORT INFORMATION
  Report Type: 
  Country: None (occurrence: None)
  Receive Date: 20050531
  Receipt Date: 20040402
  Transmission Date: 20051028
  Serious: Yes (Other)
  Sender: FDA-Public Use
  Company Number: 200412570US

PATIENT

DRUGS (3)
  1. LOVENOX [Suspect]
     Indication: DEEP VEIN THROMBOSIS
  2. WARFARIN SODIUM [Suspect]
     Indication: DEEP VEIN THROMBOSIS
  3. HEPARIN [Concomitant]

REACTIONS (3)
  - DEEP VEIN THROMBOSIS [None]
  - INTERNATIONAL NORMALISED RATIO INCREASED [None]
  - OEDEMA PERIPHERAL [None]
